FAERS Safety Report 5239691-4 (Version None)
Quarter: 2007Q1

REPORT INFORMATION
  Report Type: 
  Country: None (occurrence: None)
  Receive Date: 20070216
  Receipt Date: 20070206
  Transmission Date: 20070707
  Serious: Yes (Hospitalization)
  Sender: FDA-Public Use
  Company Number: BE-SANOFI-SYNTHELABO-A01200701359

PATIENT
  Sex: Male

DRUGS (2)
  1. ZYRTEC [Concomitant]
     Dosage: UNK
     Route: 065
  2. ELOXATIN [Suspect]
     Indication: COLORECTAL CANCER
     Route: 042
     Dates: start: 20060101, end: 20060101

REACTIONS (5)
  - CIRCULATORY COLLAPSE [None]
  - GENERALISED ERYTHEMA [None]
  - HEART RATE INCREASED [None]
  - HYPERSENSITIVITY [None]
  - PRURITUS [None]
